FAERS Safety Report 15357930 (Version 1)
Quarter: 2018Q3

REPORT INFORMATION
  Report Type: Spontaneous
  Country: US (occurrence: US)
  Receive Date: 20180906
  Receipt Date: 20180906
  Transmission Date: 20181010
  Serious: No
  Sender: FDA-Public Use
  Company Number: US-SA-2018SA240070

PATIENT
  Age: 86 Year
  Sex: Female

DRUGS (1)
  1. LANTUS SOLOSTAR [Suspect]
     Active Substance: INSULIN GLARGINE
     Indication: TYPE 2 DIABETES MELLITUS
     Dosage: 158 U, HS
     Route: 065

REACTIONS (6)
  - Blood glucose decreased [Recovered/Resolved]
  - Intentional dose omission [Unknown]
  - Device operational issue [Unknown]
  - Needle issue [Unknown]
  - Malaise [Recovered/Resolved]
  - Gait disturbance [Unknown]
